FAERS Safety Report 6595965-6 (Version None)
Quarter: 2010Q1

REPORT INFORMATION
  Report Type: 
  Country: None (occurrence: None)
  Receive Date: 20100223
  Receipt Date: 20100210
  Transmission Date: 20100710
  Serious: Yes (Hospitalization)
  Sender: FDA-Public Use
  Company Number: PHHY2010TW07737

PATIENT
  Sex: Female

DRUGS (4)
  1. ZOLEDRONATE T29581++BM [Suspect]
     Indication: METASTASES TO BONE
     Dosage: 4 MG, QMO
     Route: 042
     Dates: start: 20090302, end: 20090914
  2. CLARINASE [Concomitant]
     Indication: NASOPHARYNGITIS
     Dosage: 1 TAB/DAY
     Dates: start: 20091215, end: 20091219
  3. ROSIS [Concomitant]
     Indication: CARDIAC FAILURE CONGESTIVE
     Dosage: 80 MG/DAY
     Dates: start: 20091215, end: 20100210
  4. SPIRONOLACTONE [Concomitant]
     Indication: HYPERTENSION
     Dosage: 100 MG/DAY
     Dates: start: 20091215

REACTIONS (5)
  - DEBRIDEMENT [None]
  - OSTEITIS [None]
  - OSTEOMYELITIS [None]
  - PAIN IN JAW [None]
  - PURULENCE [None]
